FAERS Safety Report 13378715 (Version 1)
Quarter: 2017Q1

REPORT INFORMATION
  Report Type: Spontaneous
  Country: US (occurrence: US)
  Receive Date: 20170328
  Receipt Date: 20170328
  Transmission Date: 20170429
  Serious: No
  Sender: FDA-Public Use
  Company Number: None

PATIENT

DRUGS (2)
  1. TOPOSAR [Suspect]
     Active Substance: ETOPOSIDE
  2. IRINOTECAN HCL 100MG/5ML [Suspect]
     Active Substance: IRINOTECAN HYDROCHLORIDE
     Dosage: SINGLE USE VIAL

REACTIONS (2)
  - Product packaging confusion [None]
  - Product label confusion [None]
